FAERS Safety Report 8139850-7 (Version None)
Quarter: 2012Q1

REPORT INFORMATION
  Report Type: 
  Country: None (occurrence: None)
  Receive Date: 20120215
  Receipt Date: 20120208
  Transmission Date: 20120608
  Serious: Yes (Other)
  Sender: FDA-Public Use
  Company Number: DE-B.I. PHARMACEUTICALS,INC./RIDGEFIELD-2012-DE-00298DE

PATIENT
  Sex: Male
  Weight: 82 kg

DRUGS (7)
  1. RAMIPRIL 2,5 PLUS [Concomitant]
     Indication: HYPERTENSION
     Dosage: 1 ANZ
     Route: 048
  2. L-THYROXIN 75 [Concomitant]
     Indication: THYROID OPERATION
     Dosage: 1 ANZ
     Route: 048
  3. PRADAXA [Suspect]
     Indication: ATRIAL FIBRILLATION
     Dosage: 220 MG
     Dates: start: 20111101, end: 20111115
  4. SIMVASTATIN 40 [Concomitant]
     Indication: HYPERCHOLESTEROLAEMIA
     Dosage: 1 ANZ
     Route: 048
  5. PRADAXA [Suspect]
     Indication: MYOCARDIAL INFARCTION
  6. RAMIPRIL 2,5 [Concomitant]
     Indication: HYPERTENSION
     Dosage: 1 ANZ
     Route: 048
  7. L-THYROXIN 75 [Concomitant]
     Indication: HYPERTHYROIDISM

REACTIONS (1)
  - THROMBOPHLEBITIS SUPERFICIAL [None]
